FAERS Safety Report 9144587 (Version 5)
Quarter: 2014Q2

REPORT INFORMATION
  Report Type: Report from Study
  Country: US (occurrence: US)
  Receive Date: 20130306
  Receipt Date: 20140506
  Transmission Date: 20141212
  Serious: Yes (Hospitalization)
  Sender: FDA-Public Use
  Company Number: US-ROCHE-1195164

PATIENT
  Age: 68 Year
  Sex: Male
  Weight: 91 kg

DRUGS (4)
  1. PEG-INTERFERON ALFA 2A [Suspect]
     Indication: CHRONIC HEPATITIS C
     Dosage: DATE OF MOST RECENT DOSE AND DOSE RECEIVED WAS: 22 FEB 2013 AND  180 MCG
     Route: 065
     Dates: start: 20130201
  2. RIBAVIRIN [Suspect]
     Indication: CHRONIC HEPATITIS C
     Dosage: DATE OF MOST RECENT DOSE AND DOSE RECEIVED WAS: 25 FEB 2013 AND  1200 MG
     Route: 065
     Dates: start: 20130202
  3. TELAPREVIR [Suspect]
     Indication: CHRONIC HEPATITIS C
     Dosage: DAET OF MOST RECENT DOSE AND DOSE RECEIVED WAS: 25 FEB 2013 AND  2250 MG
     Route: 065
     Dates: start: 20130202
  4. BOCEPREVIR [Concomitant]

REACTIONS (1)
  - Syncope [Recovered/Resolved]
